FAERS Safety Report 8023253-X (Version None)
Quarter: 2012Q1

REPORT INFORMATION
  Report Type: 
  Country: None (occurrence: None)
  Receive Date: 20120104
  Receipt Date: 20111229
  Transmission Date: 20120608
  Serious: Yes (Hospitalization, Other)
  Sender: FDA-Public Use
  Company Number: US-AMGEN-USASP2011004553

PATIENT
  Age: 47 Year
  Sex: Female

DRUGS (1)
  1. ENBREL [Suspect]
     Indication: RHEUMATOID ARTHRITIS
     Dosage: 50 MG, QWK
     Dates: start: 20050101

REACTIONS (9)
  - OROPHARYNGEAL PAIN [None]
  - ASTHMA [None]
  - RHEUMATOID ARTHRITIS [None]
  - HYPERSENSITIVITY [None]
  - URINARY TRACT INFECTION [None]
  - RHINORRHOEA [None]
  - COUGH [None]
  - CONFUSIONAL STATE [None]
  - BRONCHITIS CHRONIC [None]
